FAERS Safety Report 12462412 (Version 3)
Quarter: 2017Q3

REPORT INFORMATION
  Report Type: Spontaneous
  Country: US (occurrence: US)
  Receive Date: 20160614
  Receipt Date: 20170817
  Transmission Date: 20171127
  Serious: No
  Sender: FDA-Public Use
  Company Number: US-ASTRAZENECA-2016SE45899

PATIENT
  Sex: Female
  Weight: 55.8 kg

DRUGS (3)
  1. SPIRIVA [Concomitant]
     Active Substance: TIOTROPIUM BROMIDE MONOHYDRATE
  2. ASMANEX [Concomitant]
     Active Substance: MOMETASONE FUROATE
  3. TUDORZA PRESSAIR [Suspect]
     Active Substance: ACLIDINIUM BROMIDE
     Indication: BRONCHOPULMONARY ASPERGILLOSIS ALLERGIC
     Route: 055
     Dates: start: 20160401

REACTIONS (2)
  - Throat irritation [Unknown]
  - Retching [Unknown]
